FAERS Safety Report 6592496-4 (Version None)
Quarter: 2010Q1

REPORT INFORMATION
  Report Type: 
  Country: None (occurrence: None)
  Receive Date: 20100221
  Receipt Date: 20091103
  Transmission Date: 20100710
  Serious: No
  Sender: FDA-Public Use
  Company Number: US-ALLERGAN-0914517US

PATIENT
  Age: 34 Year
  Sex: Female
  Weight: 65.76 kg

DRUGS (2)
  1. BOTOX [Suspect]
     Indication: INTERVERTEBRAL DISC DEGENERATION
     Dosage: 100 UNITS, SINGLE
     Route: 030
     Dates: start: 20091001, end: 20091001
  2. VICOPROFEN [Concomitant]
     Dosage: UNK

REACTIONS (5)
  - BLEPHAROSPASM [None]
  - DIZZINESS [None]
  - FATIGUE [None]
  - MUSCULAR WEAKNESS [None]
  - THERAPEUTIC RESPONSE DECREASED [None]
